FAERS Safety Report 6187419-6 (Version None)
Quarter: 2009Q2

REPORT INFORMATION
  Report Type: 
  Country: None (occurrence: None)
  Receive Date: 20090512
  Receipt Date: 20090505
  Transmission Date: 20091009
  Serious: Yes (Life-Threatening)
  Sender: FDA-Public Use
  Company Number: NL-TEVA-194267ISR

PATIENT
  Sex: Male

DRUGS (2)
  1. BACTRIM [Suspect]
     Indication: PNEUMOCYSTIS JIROVECI PNEUMONIA
     Route: 048
     Dates: end: 20090413
  2. BACTRIM [Suspect]
     Dates: start: 20090327, end: 20090413

REACTIONS (2)
  - GLOSSITIS [None]
  - PANCYTOPENIA [None]
